FAERS Safety Report 15790717 (Version 2)
Quarter: 2019Q2

REPORT INFORMATION
  Report Type: Report from Study
  Country: JP (occurrence: JP)
  Receive Date: 20190104
  Receipt Date: 20190401
  Transmission Date: 20190711
  Serious: Yes (Other)
  Sender: FDA-Public Use
  Company Number: JP-JNJFOC-20181237004

PATIENT
  Age: 44 Year
  Sex: Female
  Weight: 64 kg

DRUGS (45)
  1. REMICADE [Suspect]
     Active Substance: INFLIXIMAB
     Indication: BEHCET^S SYNDROME
     Route: 042
     Dates: start: 20170202, end: 20170202
  2. REMICADE [Suspect]
     Active Substance: INFLIXIMAB
     Indication: BEHCET^S SYNDROME
     Route: 042
     Dates: start: 20171128, end: 20180123
  3. PREDNISOLONE. [Suspect]
     Active Substance: PREDNISOLONE
     Indication: BEHCET^S SYNDROME
     Route: 048
     Dates: start: 20170217, end: 20170322
  4. TAMIFLU [Concomitant]
     Active Substance: OSELTAMIVIR PHOSPHATE
     Indication: PROPHYLAXIS
     Route: 048
     Dates: start: 20170204, end: 20170208
  5. NEXIUM [Concomitant]
     Active Substance: ESOMEPRAZOLE MAGNESIUM
     Indication: PROPHYLAXIS
     Route: 048
     Dates: start: 20170208
  6. ACELIO [Concomitant]
     Active Substance: ACETAMINOPHEN
     Indication: BEHCET^S SYNDROME
     Route: 042
     Dates: start: 20170501, end: 20170607
  7. PYDOXAL [Concomitant]
     Active Substance: PYRIDOXAL
     Indication: PROPHYLAXIS
     Route: 048
     Dates: start: 20170808
  8. REMICADE [Suspect]
     Active Substance: INFLIXIMAB
     Indication: BEHCET^S SYNDROME
     Route: 042
     Dates: start: 20170216, end: 20170216
  9. REMICADE [Suspect]
     Active Substance: INFLIXIMAB
     Indication: BEHCET^S SYNDROME
     Route: 042
     Dates: start: 20170615, end: 20170615
  10. PREDNISOLONE. [Suspect]
     Active Substance: PREDNISOLONE
     Indication: BEHCET^S SYNDROME
     Route: 048
     Dates: start: 20170512, end: 20170526
  11. ISONIAZID. [Concomitant]
     Active Substance: ISONIAZID
     Indication: ANTIBIOTIC PROPHYLAXIS
     Route: 065
     Dates: start: 20170127, end: 20170807
  12. THIAMINE DISULFIDE W/VITAMIN B6/VITAMIN B12 N [Concomitant]
     Indication: BEHCET^S SYNDROME
     Route: 042
     Dates: start: 20170502, end: 20170607
  13. VOLTAREN [Concomitant]
     Active Substance: DICLOFENAC SODIUM
     Indication: BEHCET^S SYNDROME
     Route: 051
     Dates: start: 20170815, end: 20170815
  14. COLCHICINE. [Concomitant]
     Active Substance: COLCHICINE
     Indication: BEHCET^S SYNDROME
     Route: 048
  15. NORSPAN [Concomitant]
     Active Substance: BUPRENORPHINE
     Indication: BEHCET^S SYNDROME
     Route: 061
  16. PREDNISOLONE. [Suspect]
     Active Substance: PREDNISOLONE
     Indication: BEHCET^S SYNDROME
     Route: 048
     Dates: end: 20170209
  17. PREDNISOLONE. [Suspect]
     Active Substance: PREDNISOLONE
     Indication: BEHCET^S SYNDROME
     Route: 048
     Dates: start: 20170213, end: 20170216
  18. LAC-B [Concomitant]
     Active Substance: BIFIDOBACTERIUM SPP.
     Indication: BEHCET^S SYNDROME
     Route: 048
  19. REMICADE [Suspect]
     Active Substance: INFLIXIMAB
     Indication: BEHCET^S SYNDROME
     Route: 042
     Dates: start: 20171003, end: 20171003
  20. PREDNISOLONE. [Suspect]
     Active Substance: PREDNISOLONE
     Indication: BEHCET^S SYNDROME
     Route: 048
     Dates: start: 20170615, end: 20170807
  21. SENNOSIDE [Concomitant]
     Active Substance: SENNOSIDES
     Indication: ENDOSCOPY
     Route: 048
     Dates: start: 20170507, end: 20170507
  22. MAGCOROL P [Concomitant]
     Active Substance: MAGNESIUM CITRATE
     Indication: ENDOSCOPY
     Route: 048
     Dates: start: 20170507, end: 20170507
  23. AZUNOL [SODIUM GUALENATE] [Concomitant]
     Active Substance: SODIUM GUALENATE
     Indication: BEHCET^S SYNDROME
     Route: 049
     Dates: start: 20170514, end: 20170514
  24. LOXOPROFEN [Concomitant]
     Active Substance: LOXOPROFEN
     Indication: BEHCET^S SYNDROME
     Route: 048
     Dates: start: 20170808
  25. REMICADE [Suspect]
     Active Substance: INFLIXIMAB
     Indication: BEHCET^S SYNDROME
     Route: 042
     Dates: start: 20170323, end: 20170323
  26. PREDNISOLONE. [Suspect]
     Active Substance: PREDNISOLONE
     Indication: BEHCET^S SYNDROME
     Route: 048
     Dates: start: 20170808
  27. POTACOL R [Concomitant]
     Active Substance: CALCIUM CHLORIDE\MALTOSE\POTASSIUM CHLORIDE\SODIUM CHLORIDE\SODIUM LACTATE
     Indication: BEHCET^S SYNDROME
     Route: 042
     Dates: start: 20170502, end: 20170607
  28. XYLOCAINE [Concomitant]
     Active Substance: LIDOCAINE HYDROCHLORIDE
     Indication: BEHCET^S SYNDROME
     Route: 061
     Dates: start: 20170515, end: 20170515
  29. PENTAZOCINE LACTATE [Concomitant]
     Active Substance: PENTAZOCINE LACTATE
     Indication: BEHCET^S SYNDROME
     Route: 042
     Dates: start: 20170518, end: 20170607
  30. PREDNISOLONE. [Suspect]
     Active Substance: PREDNISOLONE
     Indication: BEHCET^S SYNDROME
     Route: 048
     Dates: start: 20170527, end: 20170614
  31. BUSCOPAN [Concomitant]
     Active Substance: BUTYLSCOPOLAMINE BROMIDE
     Indication: BEHCET^S SYNDROME
     Route: 042
     Dates: start: 20170502, end: 20170607
  32. DIPHENHYDRAMINE HYDROCHLORIDE. [Concomitant]
     Active Substance: DIPHENHYDRAMINE HYDROCHLORIDE
     Indication: PROPHYLAXIS
     Route: 048
     Dates: start: 20170202
  33. CALONAL [Concomitant]
     Active Substance: ACETAMINOPHEN
     Indication: PROPHYLAXIS
     Route: 048
     Dates: start: 20170202
  34. REMICADE [Suspect]
     Active Substance: INFLIXIMAB
     Indication: BEHCET^S SYNDROME
     Route: 042
     Dates: start: 20170502, end: 20170502
  35. PREDNISOLONE. [Suspect]
     Active Substance: PREDNISOLONE
     Indication: BEHCET^S SYNDROME
     Route: 048
     Dates: start: 20170210, end: 20170212
  36. PREDNISOLONE. [Suspect]
     Active Substance: PREDNISOLONE
     Indication: BEHCET^S SYNDROME
     Route: 048
     Dates: start: 20170323, end: 20170511
  37. EURAX [Concomitant]
     Active Substance: CROTAMITON
     Indication: BEHCET^S SYNDROME
     Route: 061
  38. ORTEXER [Concomitant]
     Indication: BEHCET^S SYNDROME
     Route: 051
     Dates: start: 20170516, end: 20170516
  39. LOPERAMIDE [Concomitant]
     Active Substance: LOPERAMIDE
     Indication: BEHCET^S SYNDROME
     Route: 048
     Dates: start: 20170517, end: 20170517
  40. TRAMCET [Concomitant]
     Active Substance: ACETAMINOPHEN\TRAMADOL
     Indication: BEHCET^S SYNDROME
     Route: 048
  41. ANTEBATE [Concomitant]
     Active Substance: BETAMETHASONE DIPROPIONATE
     Indication: BEHCET^S SYNDROME
     Route: 061
  42. REMICADE [Suspect]
     Active Substance: INFLIXIMAB
     Indication: BEHCET^S SYNDROME
     Route: 042
     Dates: start: 20170808, end: 20170808
  43. DOMPERIDONE [Concomitant]
     Active Substance: DOMPERIDONE
     Indication: BEHCET^S SYNDROME
     Route: 048
     Dates: start: 20170511, end: 20170517
  44. MESALAZINE [Concomitant]
     Active Substance: MESALAMINE
     Indication: BEHCET^S SYNDROME
     Route: 048
  45. DAIPHEN [Concomitant]
     Active Substance: SULFAMETHOXAZOLE\TRIMETHOPRIM
     Indication: PROPHYLAXIS
     Route: 048

REACTIONS (11)
  - Neuropathy peripheral [Not Recovered/Not Resolved]
  - Herpes simplex [Recovered/Resolved]
  - Acne [Recovered/Resolved]
  - Haemorrhoids [Not Recovered/Not Resolved]
  - Neurogenic bladder [Not Recovered/Not Resolved]
  - Oesophageal candidiasis [Recovering/Resolving]
  - Pyoderma [Recovering/Resolving]
  - Asteatosis [Recovered/Resolved]
  - Cervicobrachial syndrome [Not Recovered/Not Resolved]
  - Enterocolitis [Recovering/Resolving]
  - Constipation [Recovered/Resolved]

NARRATIVE: CASE EVENT DATE: 20170203
